FAERS Safety Report 23058069 (Version 1)
Quarter: 2023Q4

REPORT INFORMATION
  Report Type: Report from Study
  Country: US (occurrence: US)
  Receive Date: 20231012
  Receipt Date: 20231012
  Transmission Date: 20240110
  Serious: Yes (Congenital Anomaly, Other)
  Sender: FDA-Public Use
  Company Number: US-GILEAD-2023-0646271

PATIENT

DRUGS (2)
  1. EMTRICITABINE\TENOFOVIR DISOPROXIL FUMARATE [Suspect]
     Active Substance: EMTRICITABINE\TENOFOVIR DISOPROXIL FUMARATE
     Indication: Product used for unknown indication
     Dosage: UNK
     Route: 064
  2. RALTEGRAVIR [Concomitant]
     Active Substance: RALTEGRAVIR
     Route: 064

REACTIONS (3)
  - Brain malformation [Unknown]
  - Cerebral atrophy congenital [Unknown]
  - Foetal exposure during pregnancy [Recovered/Resolved]
